FAERS Safety Report 14547264 (Version 2)
Quarter: 2019Q1

REPORT INFORMATION
  Report Type: Spontaneous
  Country: ES (occurrence: ES)
  Receive Date: 20180219
  Receipt Date: 20190319
  Transmission Date: 20190417
  Serious: Yes (Death, Hospitalization, Other)
  Sender: FDA-Public Use
  Company Number: ES-MYLANLABS-2018M1009399

PATIENT
  Age: 42 Year
  Sex: Male

DRUGS (5)
  1. TAURINE [Concomitant]
     Active Substance: TAURINE
     Indication: PRODUCT USED FOR UNKNOWN INDICATION
     Dosage: UNK (1-2 L A DAY) ONE OR TWO LITRES OF STIMULATING TAURINE-RICH DRINK (RED BULL)
     Route: 065
  2. ALCOHOL. [Suspect]
     Active Substance: ALCOHOL
     Indication: PRODUCT USED FOR UNKNOWN INDICATION
     Dosage: UNK
  3. TRYPTOPHAN, L- [Concomitant]
     Active Substance: TRYPTOPHAN
     Indication: PRODUCT USED FOR UNKNOWN INDICATION
     Dosage: 600 MG, QD
     Route: 065
  4. CITALOPRAM [Suspect]
     Active Substance: CITALOPRAM HYDROBROMIDE
     Indication: DEPRESSION
     Dosage: 20 MG, QD
     Route: 065
  5. CITALOPRAM [Suspect]
     Active Substance: CITALOPRAM HYDROBROMIDE
     Dosage: 480 MG, TOTAL (OVERDOSE WITH 480MG OF CITALOPRAM)
     Route: 065

REACTIONS (6)
  - Suicide attempt [Fatal]
  - Toxicity to various agents [Fatal]
  - Alcohol interaction [Fatal]
  - Serotonin syndrome [Fatal]
  - Food interaction [Fatal]
  - Intentional overdose [Fatal]
